FAERS Safety Report 4611370-3 (Version None)
Quarter: 2005Q2

REPORT INFORMATION
  Report Type: 
  Country: None (occurrence: None)
  Receive Date: 20050311
  Receipt Date: 20050126
  Transmission Date: 20051028
  Serious: No
  Sender: FDA-Public Use
  Company Number: 2005-BP-01204BP

PATIENT
  Age: 69 Year
  Sex: Female

DRUGS (5)
  1. SPIRIVA [Suspect]
     Indication: CHRONIC OBSTRUCTIVE PULMONARY DISEASE
     Dosage: 18 MCG (18 MCG, OD), IH
     Route: 055
     Dates: start: 20050904, end: 20050120
  2. SPIRIVA [Suspect]
  3. ALBUTEROL [Concomitant]
  4. PREVACID [Concomitant]
  5. VALIUM [Concomitant]

REACTIONS (4)
  - COUGH [None]
  - DYSPHONIA [None]
  - PALPITATIONS [None]
  - URINARY RETENTION [None]
